FAERS Safety Report 9483876 (Version 2)
Quarter: 2013Q3

REPORT INFORMATION
  Report Type: Spontaneous
  Country: CA (occurrence: CA)
  Receive Date: 20130828
  Receipt Date: 20130828
  Transmission Date: 20140515
  Serious: Yes (Hospitalization, Other)
  Sender: FDA-Public Use
  Company Number: CA-AMGEN-KDL346628

PATIENT
  Age: 61 Year
  Sex: Male

DRUGS (1)
  1. ENBREL [Suspect]
     Indication: ANKYLOSING SPONDYLITIS
     Dosage: UNK UNK, QWK
     Route: 065
     Dates: start: 20080804

REACTIONS (5)
  - Deafness bilateral [Not Recovered/Not Resolved]
  - Ear infection [Recovered/Resolved with Sequelae]
  - Balance disorder [Unknown]
  - Dizziness [Unknown]
  - Nausea [Unknown]
